FAERS Safety Report 21194973 (Version 1)
Quarter: 2022Q3

REPORT INFORMATION
  Report Type: Spontaneous
  Country: ES (occurrence: ES)
  Receive Date: 20220810
  Receipt Date: 20220810
  Transmission Date: 20221027
  Serious: Yes (Other)
  Sender: FDA-Public Use
  Company Number: None

PATIENT
  Age: 69 Year
  Sex: Female
  Weight: 65 kg

DRUGS (1)
  1. ATORVASTATIN CALCIUM [Suspect]
     Active Substance: ATORVASTATIN CALCIUM
     Indication: Hypercholesterolaemia
     Dosage: 1 DF, 1X/DAY (ONE TABLET A DAY, AT BEDTIME AT NIGHT)
     Route: 048
     Dates: start: 1990

REACTIONS (1)
  - Cough [Recovered/Resolved with Sequelae]

NARRATIVE: CASE EVENT DATE: 19900101
